FAERS Safety Report 11176976 (Version 2)
Quarter: 2015Q3

REPORT INFORMATION
  Report Type: Spontaneous
  Country: US (occurrence: US)
  Receive Date: 20150610
  Receipt Date: 20150817
  Transmission Date: 20151125
  Serious: Yes (Life-Threatening, Hospitalization, Disabling, Other)
  Sender: FDA-Public Use
  Company Number: US-BAYER-2015-302046

PATIENT
  Age: 25 Year
  Sex: Female
  Weight: 77.9 kg

DRUGS (5)
  1. MOTRIN [Concomitant]
     Active Substance: IBUPROFEN
     Dosage: 800 MG, TID
     Dates: start: 20120608
  2. TYLENOL WITH CODEINE [Concomitant]
     Active Substance: ACETAMINOPHEN\CODEINE PHOSPHATE
     Indication: PAIN
     Dosage: UNK
     Dates: start: 20120608
  3. IBUPROFEN. [Concomitant]
     Active Substance: IBUPROFEN
     Indication: PAIN
     Dosage: 600 MG, PRN
     Dates: start: 20120608
  4. MIRENA [Suspect]
     Active Substance: LEVONORGESTREL
     Indication: CONTRACEPTION
     Dosage: 20 MCG/24HR, CONT
     Route: 015
     Dates: start: 20101119, end: 20120626
  5. FLEXERIL [Concomitant]
     Active Substance: CYCLOBENZAPRINE HYDROCHLORIDE
     Indication: MUSCLE SPASMS
     Dosage: 10 MG, EVERY 8 HRS
     Dates: start: 20120608

REACTIONS (9)
  - Ectopic pregnancy with contraceptive device [None]
  - Drug ineffective [None]
  - Abdominal pain [None]
  - Pelvic pain [None]
  - Nausea [None]
  - Injury [None]
  - Uterine perforation [None]
  - General physical health deterioration [None]
  - Internal haemorrhage [Recovered/Resolved]

NARRATIVE: CASE EVENT DATE: 201106
